FAERS Safety Report 25338270 (Version 2)
Quarter: 2025Q2

REPORT INFORMATION
  Report Type: Spontaneous
  Country: TW (occurrence: TW)
  Receive Date: 20250520
  Receipt Date: 20250526
  Transmission Date: 20250716
  Serious: Yes (Death, Hospitalization, Other)
  Sender: NOVARTIS
  Company Number: TW-002147023-NVSC2025TW081006

PATIENT
  Age: 54 Year
  Sex: Male
  Weight: 52 kg

DRUGS (1)
  1. LUTATHERA [Suspect]
     Active Substance: LUTETIUM OXODOTREOTIDE LU-177
     Indication: Gastroenteropancreatic neuroendocrine tumour disease
     Route: 042
     Dates: start: 20250506, end: 20250506

REACTIONS (8)
  - Septic shock [Fatal]
  - Multiple organ dysfunction syndrome [Fatal]
  - Anaemia [Unknown]
  - Lethargy [Unknown]
  - Dizziness [Unknown]
  - Asthenia [Unknown]
  - Hypotension [Unknown]
  - Pyrexia [Unknown]

NARRATIVE: CASE EVENT DATE: 20250515
